FAERS Safety Report 4584404-2 (Version None)
Quarter: 2005Q1

REPORT INFORMATION
  Report Type: 
  Country: None (occurrence: None)
  Receive Date: 20050125
  Receipt Date: 20041119
  Transmission Date: 20050727
  Serious: Yes (Hospitalization)
  Sender: FDA-Public Use
  Company Number: USA041184179

PATIENT
  Sex: Female

DRUGS (5)
  1. FORTEO [Suspect]
     Indication: OSTEOPOROSIS
     Dates: start: 20031101
  2. SYNTHROID [Concomitant]
  3. ACETYLSALICYLIC ACID SRT [Concomitant]
  4. MACRODANTIN [Concomitant]
  5. CIPRO [Concomitant]

REACTIONS (2)
  - DIARRHOEA [None]
  - FALL [None]
